FAERS Safety Report 7096450-8 (Version None)
Quarter: 2010Q4

REPORT INFORMATION
  Report Type: 
  Country: None (occurrence: None)
  Receive Date: 20101111
  Receipt Date: 20090121
  Transmission Date: 20110411
  Serious: No
  Sender: FDA-Public Use
  Company Number: US-KINGPHARMUSA00001-K200900070

PATIENT
  Age: 58 Year
  Sex: Male

DRUGS (6)
  1. ALTACE [Suspect]
     Indication: CARDIOMYOPATHY
     Dosage: 5 MG, QD
     Route: 048
  2. ALTACE [Suspect]
     Dosage: 2.5 MG, QD
  3. ALTACE [Suspect]
     Dosage: 10 MG, QD
  4. ALTACE [Suspect]
     Dosage: 5 MG, QD
     Dates: start: 20090101, end: 20090122
  5. ATENOLOL [Concomitant]
     Indication: ARRHYTHMIA
     Dosage: UNK
  6. CRESTOR [Concomitant]
     Indication: BLOOD CHOLESTEROL INCREASED
     Dosage: UNK

REACTIONS (2)
  - CHEST PAIN [None]
  - DIZZINESS [None]
